FAERS Safety Report 25143551 (Version 1)
Quarter: 2025Q2

REPORT INFORMATION
  Report Type: Other
  Country: BR (occurrence: BR)
  Receive Date: 20250401
  Receipt Date: 20250401
  Transmission Date: 20250716
  Serious: Yes (Death)
  Sender: WAYLIS
  Company Number: BR-WT-2025-01379

PATIENT
  Age: 66 Year
  Sex: Male

DRUGS (1)
  1. CHLORAMBUCIL [Suspect]
     Active Substance: CHLORAMBUCIL
     Indication: Chronic lymphocytic leukaemia
     Route: 065

REACTIONS (4)
  - Drug ineffective [Fatal]
  - Lymphadenopathy [Fatal]
  - Chronic lymphocytic leukaemia [Fatal]
  - Disease progression [Fatal]
